FAERS Safety Report 15618024 (Version 1)
Quarter: 2018Q4

REPORT INFORMATION
  Report Type: Spontaneous
  Country: GB (occurrence: GB)
  Receive Date: 20181114
  Receipt Date: 20181114
  Transmission Date: 20190205
  Serious: Yes (Other)
  Sender: FDA-Public Use
  Company Number: GB-BAYER-2018-207728

PATIENT
  Age: 46 Year
  Sex: Male

DRUGS (1)
  1. CIPROFLOXACIN. [Suspect]
     Active Substance: CIPROFLOXACIN
     Dosage: UNK

REACTIONS (7)
  - Facial paralysis [None]
  - Deafness neurosensory [None]
  - Deafness [None]
  - Drug ineffective [None]
  - Tinnitus [None]
  - Balance disorder [None]
  - Impaired healing [None]
